FAERS Safety Report 12154608 (Version 1)
Quarter: 2016Q1

REPORT INFORMATION
  Report Type: Spontaneous
  Country: US (occurrence: None)
  Receive Date: 20160304
  Receipt Date: 20160304
  Transmission Date: 20160526
  Serious: Yes (Other)
  Sender: FDA-Public Use
  Company Number: None

PATIENT

DRUGS (9)
  1. COMBIVENT [Concomitant]
     Active Substance: ALBUTEROL SULFATE\IPRATROPIUM BROMIDE
  2. BIOTIN [Concomitant]
     Active Substance: BIOTIN
  3. IBUPROFEN. [Concomitant]
     Active Substance: IBUPROFEN
  4. CYMBALTA [Suspect]
     Active Substance: DULOXETINE HYDROCHLORIDE
     Indication: FIBROMYALGIA
     Dosage: 1 ONCE DAILY TAKEN BY MOUTH
     Dates: start: 19990601, end: 20160225
  5. SINGULAIR [Concomitant]
     Active Substance: MONTELUKAST SODIUM
  6. CYMBALTA [Suspect]
     Active Substance: DULOXETINE HYDROCHLORIDE
     Indication: DEPRESSION
     Dosage: 1 ONCE DAILY TAKEN BY MOUTH
     Dates: start: 19990601, end: 20160225
  7. ZINC ORATATE [Concomitant]
  8. VITAMIN B COMPLEX [Concomitant]
     Active Substance: CYANOCOBALAMIN\DEXPANTHENOL\NIACINAMIDE\PYRIDOXINE HYDROCHLORIDE\RIBOFLAVIN 5^-PHOSPHATE SODIUM\THIAMINE HYDROCHLORIDE\VITAMIN B COMPLEX
  9. FISH OIL [Concomitant]
     Active Substance: FISH OIL

REACTIONS (15)
  - Headache [None]
  - Crying [None]
  - Drug withdrawal syndrome [None]
  - Pain [None]
  - Anger [None]
  - Alopecia [None]
  - Abdominal pain upper [None]
  - Insomnia [None]
  - Fatigue [None]
  - Dry mouth [None]
  - Diarrhoea [None]
  - Pruritus [None]
  - Disturbance in attention [None]
  - Tremor [None]
  - Vision blurred [None]

NARRATIVE: CASE EVENT DATE: 20160303
